FAERS Safety Report 24652264 (Version 1)
Quarter: 2024Q4

REPORT INFORMATION
  Report Type: Spontaneous
  Country: HR (occurrence: HR)
  Receive Date: 20241122
  Receipt Date: 20241122
  Transmission Date: 20250115
  Serious: Yes (Hospitalization, Other)
  Sender: MERCK
  Company Number: HR-009507513-2411HRV007694

PATIENT
  Age: 79 Year

DRUGS (1)
  1. PEMBROLIZUMAB [Suspect]
     Active Substance: PEMBROLIZUMAB
     Indication: Lung squamous cell carcinoma metastatic
     Dosage: UNK

REACTIONS (3)
  - Immune-mediated myositis [Recovering/Resolving]
  - Immune-mediated arthritis [Recovering/Resolving]
  - Immune-mediated neuropathy [Recovering/Resolving]
